FAERS Safety Report 12980619 (Version 14)
Quarter: 2019Q3

REPORT INFORMATION
  Report Type: Report from Study
  Country: US (occurrence: US)
  Receive Date: 20161128
  Receipt Date: 20190813
  Transmission Date: 20191004
  Serious: Yes (Hospitalization, Other)
  Sender: FDA-Public Use
  Company Number: US-ACTELION-A-US2016-135062

PATIENT
  Age: 85 Year
  Sex: Female
  Weight: 56.24 kg

DRUGS (6)
  1. TRACLEER [Suspect]
     Active Substance: BOSENTAN
     Dosage: UNK
     Route: 048
  2. LINZESS [Suspect]
     Active Substance: LINACLOTIDE
     Indication: PRODUCT USED FOR UNKNOWN INDICATION
     Dosage: UNK
     Route: 065
     Dates: start: 20170811
  3. SILDENAFIL. [Concomitant]
     Active Substance: SILDENAFIL
  4. ADCIRCA [Concomitant]
     Active Substance: TADALAFIL
  5. TRACLEER [Suspect]
     Active Substance: BOSENTAN
     Indication: PULMONARY ARTERIAL HYPERTENSION
     Dosage: 125 MG, BID
     Route: 048
     Dates: start: 20160325
  6. TRACLEER [Suspect]
     Active Substance: BOSENTAN
     Dosage: 125 MG, BID
     Route: 048

REACTIONS (44)
  - Scleroderma [Unknown]
  - Head discomfort [Unknown]
  - Back pain [Unknown]
  - Arthralgia [Unknown]
  - Restless legs syndrome [Unknown]
  - Sneezing [Unknown]
  - Urine output decreased [Unknown]
  - Neuropathy peripheral [Unknown]
  - Malaise [Unknown]
  - Pulmonary oedema [Unknown]
  - Cough [Unknown]
  - Gait disturbance [Unknown]
  - Diarrhoea [Unknown]
  - Abdominal distension [Unknown]
  - Nausea [Unknown]
  - Somnolence [Unknown]
  - Dizziness [Unknown]
  - Gastric disorder [Unknown]
  - Herpes zoster [Unknown]
  - Fluid retention [Unknown]
  - Muscle spasms [Unknown]
  - Muscle strain [Unknown]
  - Chills [Unknown]
  - Swelling [Unknown]
  - Presyncope [Unknown]
  - Muscular weakness [Unknown]
  - Respiratory tract congestion [Unknown]
  - Dyspnoea [Unknown]
  - Blood sodium decreased [Unknown]
  - Cardiac failure [Unknown]
  - Vulvovaginal mycotic infection [Unknown]
  - Constipation [Unknown]
  - Pruritus [Unknown]
  - Anxiety [Unknown]
  - Spinal fracture [Unknown]
  - Hyponatraemia [Unknown]
  - Oedema peripheral [Recovering/Resolving]
  - Pulmonary fibrosis [Unknown]
  - Balance disorder [Unknown]
  - Myalgia [Unknown]
  - Pneumonia [Unknown]
  - Lethargy [Unknown]
  - Epistaxis [Unknown]
  - Spinal stenosis [Unknown]

NARRATIVE: CASE EVENT DATE: 20171010
